FAERS Safety Report 9818211 (Version 2)
Quarter: 2014Q2

REPORT INFORMATION
  Report Type: Spontaneous
  Country: US (occurrence: None)
  Receive Date: 20131223
  Receipt Date: 20140530
  Transmission Date: 20141212
  Serious: No
  Sender: FDA-Public Use
  Company Number: 222675

PATIENT
  Age: 47 Year
  Sex: Female

DRUGS (1)
  1. PICATO [Suspect]
     Indication: ACTINIC KERATOSIS
     Route: 061
     Dates: start: 20130712, end: 20130714

REACTIONS (8)
  - Wound [None]
  - Application site pain [None]
  - Drug administered at inappropriate site [None]
  - Incorrect dose administered [None]
  - Incorrect drug administration duration [None]
  - Application site scar [None]
  - Application site pain [None]
  - Incorrect drug administration duration [None]
